FAERS Safety Report 8854047 (Version 3)
Quarter: 2012Q4

REPORT INFORMATION
  Report Type: 
  Country: AU (occurrence: AU)
  Receive Date: 20121022
  Receipt Date: 20121123
  Transmission Date: 20130627
  Serious: Yes (Other)
  Sender: FDA-Public Use
  Company Number: PHHY2012AU093357

PATIENT
  Age: 81 Year
  Sex: Female

DRUGS (8)
  1. ACLASTA [Suspect]
     Indication: OSTEOPOROSIS
     Dosage: 5 mg, UNK
     Route: 042
     Dates: start: 20120924
  2. LIPITOR [Concomitant]
     Indication: HYPERCHOLESTEROLAEMIA
     Dosage: UNK UKN, UNK
  3. BETALOL [Concomitant]
     Indication: HYPERTENSION
  4. OSTELIN VITAMIN D [Concomitant]
     Indication: OSTEOPOROSIS
  5. PANADOL OSTEO [Concomitant]
     Indication: OSTEOARTHRITIS
  6. GLUCOSAMIN [Concomitant]
     Indication: OSTEOARTHRITIS
     Dosage: 1500 IU, UNK
  7. DOXEPIN [Concomitant]
     Indication: ANXIETY
  8. NORVASC [Concomitant]

REACTIONS (5)
  - Oral herpes [Recovered/Resolved]
  - Varicella [Recovering/Resolving]
  - Rash generalised [Recovering/Resolving]
  - Oedema peripheral [Recovering/Resolving]
  - Musculoskeletal stiffness [Recovered/Resolved]
